FAERS Safety Report 7108518-8 (Version None)
Quarter: 2010Q4

REPORT INFORMATION
  Report Type: 
  Country: None (occurrence: None)
  Receive Date: 20101117
  Receipt Date: 20100812
  Transmission Date: 20110411
  Serious: No
  Sender: FDA-Public Use
  Company Number: A0874276A

PATIENT
  Age: 46 Year
  Sex: Female

DRUGS (1)
  1. VOTRIENT [Suspect]
     Dosage: 400MG TWICE PER DAY
     Route: 048

REACTIONS (2)
  - NAUSEA [None]
  - SOMNOLENCE [None]
